FAERS Safety Report 22774474 (Version 3)
Quarter: 2025Q1

REPORT INFORMATION
  Report Type: Spontaneous
  Country: ES (occurrence: ES)
  Receive Date: 20230802
  Receipt Date: 20250221
  Transmission Date: 20250408
  Serious: Yes (Other)
  Sender: CELLTRION
  Company Number: ES-CELLTRION INC.-2023ES015032

PATIENT

DRUGS (12)
  1. BEVACIZUMAB [Suspect]
     Active Substance: BEVACIZUMAB
     Indication: Hepatocellular carcinoma
     Route: 065
     Dates: start: 20230208
  2. ATEZOLIZUMAB [Suspect]
     Active Substance: ATEZOLIZUMAB
     Indication: Hepatocellular carcinoma
     Route: 041
     Dates: start: 20230208
  3. OMEPRAZOLE [Concomitant]
     Active Substance: OMEPRAZOLE
     Indication: Prophylaxis
  4. FUROSEMIDE [Concomitant]
     Active Substance: FUROSEMIDE
     Dates: end: 20230803
  5. SIMVASTATIN [Concomitant]
     Active Substance: SIMVASTATIN
  6. ATENOLOL [Concomitant]
     Active Substance: ATENOLOL
  7. ACETAMINOPHEN [Concomitant]
     Active Substance: ACETAMINOPHEN
     Indication: Prophylaxis
     Dates: start: 20230131
  8. METAMIZOLE [Concomitant]
     Active Substance: METAMIZOLE
     Dates: start: 20230131
  9. LORMETAZEPAM [Concomitant]
     Active Substance: LORMETAZEPAM
     Indication: Prophylaxis
     Dates: start: 20230208
  10. FENTANYL [Concomitant]
     Active Substance: FENTANYL
     Dates: start: 20230301
  11. CEFUROXIME [Concomitant]
     Active Substance: CEFUROXIME
     Dates: start: 20230314
  12. HYDROCHLOROTHIAZIDE\VALSARTAN [Concomitant]
     Active Substance: HYDROCHLOROTHIAZIDE\VALSARTAN

REACTIONS (3)
  - Hepatitis [Recovered/Resolved]
  - Nausea [Recovered/Resolved]
  - Intentional product use issue [Unknown]

NARRATIVE: CASE EVENT DATE: 20230615
